FAERS Safety Report 9425693 (Version 2)
Quarter: 2013Q3

REPORT INFORMATION
  Report Type: Spontaneous
  Country: US (occurrence: US)
  Receive Date: 20130729
  Receipt Date: 20130805
  Transmission Date: 20140515
  Serious: No
  Sender: FDA-Public Use
  Company Number: US-BAXTER-2013BAX029647

PATIENT
  Sex: 0

DRUGS (2)
  1. STERILE WATER FOR INJECTION [Suspect]
     Indication: RESPIRATORY THERAPY
     Dates: start: 20130716
  2. STERILE WATER FOR INJECTION [Suspect]
     Indication: OFF LABEL USE

REACTIONS (2)
  - Wrong drug administered [Unknown]
  - No adverse event [Recovered/Resolved]
